FAERS Safety Report 4914914-7 (Version None)
Quarter: 2006Q1

REPORT INFORMATION
  Report Type: 
  Country: None (occurrence: None)
  Receive Date: 20060215
  Receipt Date: 20060215
  Transmission Date: 20060701
  Serious: Yes (Hospitalization)
  Sender: FDA-Public Use
  Company Number: None

PATIENT
  Age: 83 Year
  Sex: Female

DRUGS (2)
  1. PHENYTOIN [Suspect]
     Indication: CONVULSION
     Dosage: 100 MG, 200 MG AM , HS PO
     Route: 048
     Dates: start: 20050909, end: 20051004
  2. WARFARIN 3 MG [Suspect]
     Indication: ATRIAL FIBRILLATION
     Dosage: 3 MG, 6 MG MWF, OTHER DAYS PO
     Route: 048

REACTIONS (2)
  - COORDINATION ABNORMAL [None]
  - INTERNATIONAL NORMALISED RATIO INCREASED [None]
